FAERS Safety Report 12189174 (Version 2)
Quarter: 2016Q2

REPORT INFORMATION
  Report Type: Spontaneous
  Country: BR (occurrence: BR)
  Receive Date: 20160317
  Receipt Date: 20160419
  Transmission Date: 20160815
  Serious: Yes (Death, Life-Threatening, Hospitalization, Other)
  Sender: FDA-Public Use
  Company Number: BR-ASTRAZENECA-2016SE27981

PATIENT
  Age: 731 Month
  Sex: Female
  Weight: 90 kg

DRUGS (2)
  1. VANNAIR [Suspect]
     Active Substance: BUDESONIDE\FORMOTEROL FUMARATE DIHYDRATE
     Indication: ASTHMA
     Dosage: 160/4.5MCG, FREQUENCY UNKNOWN
     Route: 055
     Dates: start: 201603
  2. GLIMEPIRIDE. [Concomitant]
     Active Substance: GLIMEPIRIDE
     Indication: DIABETES MELLITUS
     Route: 048

REACTIONS (6)
  - Cardiac disorder [Unknown]
  - Pulmonary embolism [Fatal]
  - Asthma [Recovering/Resolving]
  - Hyperglycaemia [Fatal]
  - Intentional product misuse [Not Recovered/Not Resolved]
  - Renal failure [Fatal]

NARRATIVE: CASE EVENT DATE: 201603
